FAERS Safety Report 19212876 (Version 3)
Quarter: 2021Q3

REPORT INFORMATION
  Report Type: Spontaneous
  Country: JP (occurrence: JP)
  Receive Date: 20210504
  Receipt Date: 20210811
  Transmission Date: 20211014
  Serious: Yes (Other)
  Sender: FDA-Public Use
  Company Number: JP-AMGEN-JPNSP2021019788

PATIENT
  Age: 7 Decade

DRUGS (3)
  1. NESP [Suspect]
     Active Substance: DARBEPOETIN ALFA
     Indication: NEPHROGENIC ANAEMIA
     Dosage: UNK
     Route: 065
  2. DUVROQ [Suspect]
     Active Substance: DAPRODUSTAT
     Indication: PRODUCT USED FOR UNKNOWN INDICATION
     Dosage: UNK
     Route: 048
  3. FERROMIA [Suspect]
     Active Substance: SODIUM FERROUS CITRATE
     Indication: HAEMOGLOBIN DECREASED
     Dosage: UNK
     Route: 048

REACTIONS (3)
  - Renal impairment [Not Recovered/Not Resolved]
  - Faeces discoloured [Unknown]
  - Blood creatinine increased [Unknown]
